FAERS Safety Report 5857892-9 (Version None)
Quarter: 2008Q3

REPORT INFORMATION
  Report Type: 
  Country: None (occurrence: None)
  Receive Date: 20080826
  Receipt Date: 20080818
  Transmission Date: 20090109
  Serious: Yes (Disabling)
  Sender: FDA-Public Use
  Company Number: DK-ASTRAZENECA-2008SE03950

PATIENT
  Age: 17599 Day
  Sex: Male

DRUGS (4)
  1. SEROQUEL [Suspect]
     Indication: ANXIETY
     Route: 048
     Dates: start: 20080104
  2. LAMOTRIGINE [Concomitant]
     Indication: DEPRESSION
     Dates: start: 20071114
  3. OXAPAX [Concomitant]
     Indication: ANXIETY
     Route: 048
     Dates: start: 20080104
  4. ZOLPIDEM TARTRATE [Concomitant]
     Indication: INSOMNIA
     Route: 048
     Dates: start: 20071025

REACTIONS (2)
  - APHASIA [None]
  - MEMORY IMPAIRMENT [None]
